FAERS Safety Report 9254568 (Version 1)
Quarter: 2013Q1

REPORT INFORMATION
  Report Type: Spontaneous
  Country: US (occurrence: None)
  Receive Date: 20121203
  Receipt Date: 20121203
  Transmission Date: 20140127
  Serious: Yes (Hospitalization)
  Sender: FDA-Public Use
  Company Number: 2012SP017146

PATIENT
  Age: 27 Year
  Sex: Female

DRUGS (1)
  1. NUVARING [Suspect]
     Indication: CONTRACEPTION
     Dates: start: 20080908, end: 200910

REACTIONS (12)
  - Deep vein thrombosis [None]
  - Myalgia [None]
  - Contusion [None]
  - Anxiety disorder [None]
  - Panic disorder [None]
  - Fatigue [None]
  - Fall [None]
  - Contusion [None]
  - Diarrhoea [None]
  - Vomiting [None]
  - Ovarian cyst [None]
  - White blood cell count increased [None]
